FAERS Safety Report 17731496 (Version 3)
Quarter: 2020Q3

REPORT INFORMATION
  Report Type: Report from Study
  Country: US (occurrence: US)
  Receive Date: 20200430
  Receipt Date: 20200831
  Transmission Date: 20201102
  Serious: Yes (Hospitalization)
  Sender: FDA-Public Use
  Company Number: US-009507513-2004USA007334

PATIENT
  Age: 78 Year
  Sex: Female

DRUGS (10)
  1. POTASSIUM (UNSPECIFIED) [Concomitant]
     Active Substance: POTASSIUM
     Dosage: 2 TABLETS DAILY (400 MG)
     Route: 048
  2. MAGNESIUM (UNSPECIFIED) [Concomitant]
     Active Substance: MAGNESIUM
     Dosage: 3 TAB A DAY (1200 MG)
  3. CALCIUM (UNSPECIFIED) [Concomitant]
     Active Substance: CALCIUM
     Dosage: 1200 MG DAILY
  4. CLARITIN [Concomitant]
     Active Substance: LORATADINE
     Indication: BACK PAIN
  5. NORTRIPTYLINE [Concomitant]
     Active Substance: NORTRIPTYLINE
     Indication: IRRITABLE BOWEL SYNDROME
     Dosage: 35 MG AT NIGHT
  6. FOLIC ACID. [Concomitant]
     Active Substance: FOLIC ACID
     Indication: RED BLOOD CELL ABNORMALITY
  7. PREVYMIS [Suspect]
     Active Substance: LETERMOVIR
     Indication: CYTOMEGALOVIRUS INFECTION
     Dosage: 720 MG (3 TABLETS OF 240MG EACH) DAILY, EVERY MORNING
     Route: 048
     Dates: start: 20200316
  8. CLARITIN [Concomitant]
     Active Substance: LORATADINE
     Indication: BONE PAIN
     Dosage: OTC
  9. DICYCLOMINE HYDROCHLORIDE. [Concomitant]
     Active Substance: DICYCLOMINE HYDROCHLORIDE
  10. CENTRUM SILVER [Concomitant]
     Active Substance: MINERALS\VITAMINS

REACTIONS (15)
  - Therapeutic product effect variable [Not Recovered/Not Resolved]
  - Irritable bowel syndrome [Recovering/Resolving]
  - Retinal scar [Recovering/Resolving]
  - Adverse event [Not Recovered/Not Resolved]
  - Abdominal distension [Not Recovered/Not Resolved]
  - Stomatitis [Recovering/Resolving]
  - Nausea [Not Recovered/Not Resolved]
  - Product use in unapproved indication [Unknown]
  - Incorrect dose administered [Unknown]
  - Therapeutic product effective for unapproved indication [Recovering/Resolving]
  - Urinary tract infection [Recovered/Resolved]
  - Abdominal pain upper [Recovering/Resolving]
  - Product dose omission issue [Unknown]
  - Vision blurred [Recovering/Resolving]
  - Circumstance or information capable of leading to medication error [Unknown]

NARRATIVE: CASE EVENT DATE: 2020
